FAERS Safety Report 4316051-1 (Version None)
Quarter: 2004Q1

REPORT INFORMATION
  Report Type: 
  Country: None (occurrence: None)
  Receive Date: 20040312
  Receipt Date: 20040301
  Transmission Date: 20041129
  Serious: Yes (Hospitalization)
  Sender: FDA-Public Use
  Company Number: PHNR2004AU00711

PATIENT
  Sex: Male

DRUGS (9)
  1. NITRODERM [Suspect]
     Indication: ESSENTIAL HYPERTENSION
     Dosage: 25 MG, PRN
     Route: 062
     Dates: start: 20030805
  2. DILANTIN [Suspect]
     Indication: CONVULSION
     Dosage: 300 MG, QD
     Route: 048
     Dates: start: 20021103, end: 20030814
  3. AVAPRO [Suspect]
     Indication: ESSENTIAL HYPERTENSION
     Dosage: 150 MG, QD
     Route: 048
     Dates: end: 20030806
  4. CEFTRIAXONE [Suspect]
     Indication: URINARY TRACT INFECTION
     Dosage: 1 G, QD
     Dates: start: 20030808, end: 20030813
  5. ZOLOFT [Concomitant]
  6. ZOTON [Concomitant]
  7. BACLOFEN [Concomitant]
  8. COLOXYL WITH SENNA [Concomitant]
  9. ISCOVER [Concomitant]

REACTIONS (2)
  - JAUNDICE [None]
  - LIVER FUNCTION TEST ABNORMAL [None]
